FAERS Safety Report 7547890-1 (Version None)
Quarter: 2011Q2

REPORT INFORMATION
  Report Type: 
  Country: None (occurrence: None)
  Receive Date: 20110615
  Receipt Date: 20110606
  Transmission Date: 20111010
  Serious: No
  Sender: FDA-Public Use
  Company Number: US-BIOGENIDEC-2011BI020865

PATIENT
  Age: 54 Year
  Sex: Male

DRUGS (1)
  1. TYSABRI [Suspect]
     Indication: MULTIPLE SCLEROSIS
     Route: 042
     Dates: start: 20080908

REACTIONS (7)
  - DIZZINESS [None]
  - HAEMATOSPERMIA [None]
  - WEIGHT INCREASED [None]
  - NERVE INJURY [None]
  - FATIGUE [None]
  - BLOOD URINE PRESENT [None]
  - HEPATIC STEATOSIS [None]
